FAERS Safety Report 19895584 (Version 1)
Quarter: 2021Q3

REPORT INFORMATION
  Report Type: Spontaneous
  Country: US (occurrence: US)
  Receive Date: 20210929
  Receipt Date: 20210929
  Transmission Date: 20211014
  Serious: No
  Sender: FDA-Public Use
  Company Number: None

PATIENT

DRUGS (1)
  1. REGEN?COV [Suspect]
     Active Substance: CASIRIVIMAB\IMDEVIMAB
     Route: 042

REACTIONS (5)
  - Infusion related reaction [None]
  - Urticaria [None]
  - Chest discomfort [None]
  - Pruritus [None]
  - Dyspnoea [None]

NARRATIVE: CASE EVENT DATE: 20210910
